FAERS Safety Report 19960284 (Version 1)
Quarter: 2021Q4

REPORT INFORMATION
  Report Type: Spontaneous
  Country: US (occurrence: US)
  Receive Date: 20211015
  Receipt Date: 20211015
  Transmission Date: 20220303
  Serious: Yes (Other)
  Sender: FDA-Public Use
  Company Number: US-JNJFOC-20211014053

PATIENT
  Age: 62 Year
  Sex: Male

DRUGS (1)
  1. RYBREVANT [Suspect]
     Active Substance: AMIVANTAMAB-VMJW
     Indication: Non-small cell lung cancer metastatic
     Dosage: 50 ML/HOUR
     Route: 042
     Dates: start: 20210929, end: 20211005

REACTIONS (5)
  - Tachycardia [Unknown]
  - Infusion related reaction [Unknown]
  - Cough [Unknown]
  - Chest pain [Unknown]
  - Dyspnoea [Unknown]

NARRATIVE: CASE EVENT DATE: 20211005
